FAERS Safety Report 15899875 (Version 1)
Quarter: 2019Q1

REPORT INFORMATION
  Report Type: Spontaneous
  Country: US (occurrence: US)
  Receive Date: 20190201
  Receipt Date: 20190201
  Transmission Date: 20190417
  Serious: Yes (Other)
  Sender: FDA-Public Use
  Company Number: US-MYLANLABS-2019M1009874

PATIENT

DRUGS (2)
  1. FONDAPARINUX SODIUM INJECTION, USP [Suspect]
     Active Substance: FONDAPARINUX SODIUM
     Dosage: UNK
  2. FONDAPARINUX SODIUM INJECTION, USP [Suspect]
     Active Substance: FONDAPARINUX SODIUM
     Indication: THROMBOSIS PROPHYLAXIS
     Dosage: 1 DOSAGE FORM
     Dates: start: 20180513

REACTIONS (1)
  - Hypersensitivity [Unknown]

NARRATIVE: CASE EVENT DATE: 20180720
